FAERS Safety Report 9966528 (Version 1)
Quarter: 2014Q1

REPORT INFORMATION
  Report Type: Report from Study
  Country: US (occurrence: US)
  Receive Date: 20140305
  Receipt Date: 20140305
  Transmission Date: 20141002
  Serious: No
  Sender: FDA-Public Use
  Company Number: US-ABBVIE-13P-163-1122571-00

PATIENT
  Age: 42 Year
  Sex: Male

DRUGS (8)
  1. HUMIRA [Suspect]
     Indication: CROHN^S DISEASE
     Dates: start: 201001
  2. HUMIRA [Suspect]
     Indication: COLITIS ULCERATIVE
     Dates: start: 20130703
  3. VITAMIN D [Concomitant]
     Indication: VITAMIN SUPPLEMENTATION
     Dosage: ONCE DAILY
  4. ZANTAC [Concomitant]
     Indication: DYSPEPSIA
  5. EFFEXOR [Concomitant]
     Indication: CROHN^S DISEASE
  6. CLONAZEPAM [Concomitant]
     Indication: CROHN^S DISEASE
  7. CLARITIN [Concomitant]
     Indication: HYPERSENSITIVITY
  8. NASAL SPRAY (EITHER FLONASE OR NASONEX) [Concomitant]
     Indication: HYPERSENSITIVITY
     Dosage: 2 SPRAYS ONCE DAY EACH NOSTRIL

REACTIONS (4)
  - Pain [Not Recovered/Not Resolved]
  - Crohn^s disease [Not Recovered/Not Resolved]
  - Colitis ulcerative [Not Recovered/Not Resolved]
  - Drug ineffective [Not Recovered/Not Resolved]
